FAERS Safety Report 18482181 (Version 1)
Quarter: 2020Q4

REPORT INFORMATION
  Report Type: Spontaneous
  Country: GB (occurrence: GB)
  Receive Date: 20201110
  Receipt Date: 20201110
  Transmission Date: 20210114
  Serious: Yes (Other)
  Sender: FDA-Public Use
  Company Number: GB-ADVANZ PHARMA-202010009766

PATIENT

DRUGS (3)
  1. PREDNISOLONE. [Suspect]
     Active Substance: PREDNISOLONE
     Indication: IRIDOCYCLITIS
     Dosage: 6 GTT DROPS, QD, EYE DROPS
     Route: 047
     Dates: start: 20201007
  2. TIMOLOL. [Concomitant]
     Active Substance: TIMOLOL
  3. ETORICOXIB. [Concomitant]
     Active Substance: ETORICOXIB

REACTIONS (1)
  - Dry eye [Not Recovered/Not Resolved]

NARRATIVE: CASE EVENT DATE: 20201007
